FAERS Safety Report 9937302 (Version 1)
Quarter: 2014Q1

REPORT INFORMATION
  Report Type: Report from Study
  Country: CO (occurrence: CO)
  Receive Date: 20140302
  Receipt Date: 20140302
  Transmission Date: 20141002
  Serious: Yes (Hospitalization)
  Sender: FDA-Public Use
  Company Number: CO-US-EMD SERONO, INC.-7271741

PATIENT
  Age: 44 Year
  Sex: Female
  Weight: 83 kg

DRUGS (1)
  1. REBIF [Suspect]
     Indication: PRODUCT USED FOR UNKNOWN INDICATION
     Dosage: 44MCG/0.5ML
     Route: 058
     Dates: start: 2007

REACTIONS (1)
  - Optic neuritis [Unknown]
